FAERS Safety Report 21575398 (Version 3)
Quarter: 2023Q1

REPORT INFORMATION
  Report Type: Report from Study
  Country: US (occurrence: US)
  Receive Date: 20221110
  Receipt Date: 20230321
  Transmission Date: 20230418
  Serious: No
  Sender: FDA-Public Use
  Company Number: US-ABBVIE-22K-163-4417409-00

PATIENT
  Sex: Male

DRUGS (2)
  1. CARBIDOPA\LEVODOPA [Suspect]
     Active Substance: CARBIDOPA\LEVODOPA
     Indication: Parkinson^s disease
     Dosage: DRUG STAR DATE WAS 25 MAY 2022
     Route: 050
  2. CARBIDOPA\LEVODOPA [Suspect]
     Active Substance: CARBIDOPA\LEVODOPA
     Indication: Parkinson^s disease

REACTIONS (6)
  - Fall [Not Recovered/Not Resolved]
  - Device dislocation [Not Recovered/Not Resolved]
  - Device issue [Unknown]
  - On and off phenomenon [Unknown]
  - Freezing phenomenon [Unknown]
  - Device use error [Not Recovered/Not Resolved]

NARRATIVE: CASE EVENT DATE: 20220101
